FAERS Safety Report 4907013-1 (Version None)
Quarter: 2006Q1

REPORT INFORMATION
  Report Type: 
  Country: None (occurrence: None)
  Receive Date: 20060208
  Receipt Date: 20060125
  Transmission Date: 20060701
  Serious: Yes (Death)
  Sender: FDA-Public Use
  Company Number: 2006S1000017

PATIENT
  Age: 69 Year
  Sex: Male

DRUGS (4)
  1. CUBICIN [Suspect]
     Indication: ANTIBIOTIC PROPHYLAXIS
     Dosage: X1; IV
     Route: 042
     Dates: start: 20060101, end: 20060101
  2. METRONIDAZOLE [Concomitant]
  3. DIGOXIN [Concomitant]
  4. INSULIN [Concomitant]

REACTIONS (5)
  - CARDIAC ARREST [None]
  - VENTRICULAR FIBRILLATION [None]
  - VENTRICULAR TACHYCARDIA [None]
  - WOUND INFECTION [None]
  - WOUND NECROSIS [None]
